FAERS Safety Report 6249193-4 (Version None)
Quarter: 2009Q2

REPORT INFORMATION
  Report Type: 
  Country: None (occurrence: None)
  Receive Date: 20090629
  Receipt Date: 20090623
  Transmission Date: 20091009
  Serious: Yes (Life-Threatening)
  Sender: FDA-Public Use
  Company Number: PHHY2009IT25864

PATIENT

DRUGS (3)
  1. EXJADE [Suspect]
     Dosage: 30 MG/KG, UNK
     Dates: start: 20040101, end: 20090604
  2. EXJADE [Interacting]
     Dosage: 25 MG/KG, UNK
     Dates: start: 20090605, end: 20090615
  3. PEGASYS [Interacting]
     Indication: HEPATITIS C
     Dosage: UNK
     Dates: start: 20081201

REACTIONS (2)
  - DRUG INTERACTION [None]
  - PROTEINURIA [None]
